FAERS Safety Report 19154639 (Version 1)
Quarter: 2021Q2

REPORT INFORMATION
  Report Type: Spontaneous
  Country: CN (occurrence: CN)
  Receive Date: 20210419
  Receipt Date: 20210419
  Transmission Date: 20210717
  Serious: Yes (Hospitalization)
  Sender: FDA-Public Use
  Company Number: CN-BAYER-2021-121957

PATIENT
  Age: 73 Year
  Sex: Female

DRUGS (2)
  1. AVELOX [Suspect]
     Active Substance: MOXIFLOXACIN HYDROCHLORIDE
     Indication: INFLAMMATION
     Dosage: 0.4 G, QD
     Route: 041
     Dates: start: 20210323, end: 20210328
  2. DEXAMETHASONE SODIUM PHOSPHATE. [Suspect]
     Active Substance: DEXAMETHASONE SODIUM PHOSPHATE
     Indication: INFLAMMATION
     Dosage: 5 MG, QD
     Route: 041
     Dates: start: 20210325, end: 20210327

REACTIONS (4)
  - Aggression [Recovering/Resolving]
  - Dysphoria [Recovering/Resolving]
  - Sleep disorder [Recovering/Resolving]
  - Emotional disorder [Recovering/Resolving]

NARRATIVE: CASE EVENT DATE: 20210326
